FAERS Safety Report 13263447 (Version 2)
Quarter: 2017Q1

REPORT INFORMATION
  Report Type: Spontaneous
  Country: FR (occurrence: FR)
  Receive Date: 20170223
  Receipt Date: 20170322
  Transmission Date: 20170428
  Serious: Yes (Hospitalization, Disabling, Other)
  Sender: FDA-Public Use
  Company Number: FR-AMGEN-FRASP2017026689

PATIENT
  Age: 79 Year
  Sex: Female

DRUGS (1)
  1. PROLIA [Suspect]
     Active Substance: DENOSUMAB
     Indication: OSTEOPOROSIS
     Dosage: UNK UNK, Q6MO
     Route: 058
     Dates: start: 2015, end: 201610

REACTIONS (6)
  - Vitamin D deficiency [Recovered/Resolved]
  - Joint injury [Unknown]
  - Meniscus injury [Unknown]
  - Cataract operation [Unknown]
  - Osteonecrosis [Not Recovered/Not Resolved]
  - Endoscopy upper gastrointestinal tract [Unknown]

NARRATIVE: CASE EVENT DATE: 201502
